FAERS Safety Report 8029082-5 (Version None)
Quarter: 2012Q1

REPORT INFORMATION
  Report Type: 
  Country: None (occurrence: None)
  Receive Date: 20120106
  Receipt Date: 20120104
  Transmission Date: 20120608
  Serious: Yes (Other)
  Sender: FDA-Public Use
  Company Number: US-PFIZER INC-2012002717

PATIENT
  Age: 64 Year
  Sex: Female
  Weight: 89.8 kg

DRUGS (1)
  1. PREMARIN [Suspect]
     Indication: MENOPAUSE
     Dosage: UNK
     Route: 048

REACTIONS (7)
  - ABASIA [None]
  - NEOPLASM MALIGNANT [None]
  - JOINT SWELLING [None]
  - THROMBOSIS [None]
  - VISUAL IMPAIRMENT [None]
  - CYSTITIS [None]
  - PAIN IN EXTREMITY [None]
